FAERS Safety Report 4662349-7 (Version None)
Quarter: 2005Q2

REPORT INFORMATION
  Report Type: 
  Country: None (occurrence: None)
  Receive Date: 20050516
  Receipt Date: 20050506
  Transmission Date: 20051028
  Serious: Yes (Hospitalization, Other)
  Sender: FDA-Public Use
  Company Number: AU-JNJFOC-20050403987

PATIENT
  Age: 45 Year
  Sex: Female
  Weight: 91 kg

DRUGS (1)
  1. CAELYX [Suspect]
     Route: 042

REACTIONS (4)
  - PALMAR-PLANTAR ERYTHRODYSAESTHESIA SYNDROME [None]
  - RASH GENERALISED [None]
  - STOMATITIS [None]
  - SWELLING FACE [None]
